FAERS Safety Report 18704425 (Version 1)
Quarter: 2021Q1

REPORT INFORMATION
  Report Type: Report from Study
  Country: GB (occurrence: GB)
  Receive Date: 20210106
  Receipt Date: 20210106
  Transmission Date: 20210419
  Serious: Yes (Hospitalization, Other)
  Sender: FDA-Public Use
  Company Number: GB-TEVA-2021-GB-1866248

PATIENT
  Age: 48 Year
  Sex: Female

DRUGS (1)
  1. AJOVY [Suspect]
     Active Substance: FREMANEZUMAB-VFRM
     Indication: MIGRAINE
     Route: 058
     Dates: start: 20200222

REACTIONS (8)
  - Cough [Recovered/Resolved]
  - Malaise [Recovered/Resolved]
  - Impaired work ability [Recovered/Resolved]
  - Oxygen saturation decreased [Recovered/Resolved]
  - Coronavirus infection [Recovered/Resolved]
  - Dyspnoea [Recovered/Resolved]
  - Fatigue [Recovered/Resolved]
  - Bedridden [Recovered/Resolved]

NARRATIVE: CASE EVENT DATE: 202003
